FAERS Safety Report 12961299 (Version 22)
Quarter: 2025Q3

REPORT INFORMATION
  Report Type: Spontaneous
  Country: US (occurrence: US)
  Receive Date: 20161121
  Receipt Date: 20250729
  Transmission Date: 20251020
  Serious: No
  Sender: PFIZER
  Company Number: US-PFIZER INC-2016538805

PATIENT
  Age: 20 Year
  Sex: Male

DRUGS (21)
  1. SOMAVERT [Suspect]
     Active Substance: PEGVISOMANT
     Indication: Acromegaly
     Route: 058
  2. SOMAVERT [Suspect]
     Active Substance: PEGVISOMANT
     Indication: Gigantism
     Dosage: 10 MG, DAILY
     Route: 058
  3. SOMAVERT [Suspect]
     Active Substance: PEGVISOMANT
     Dosage: 15 MG, ONCE DAILY
     Route: 058
     Dates: start: 20170209
  4. SOMAVERT [Suspect]
     Active Substance: PEGVISOMANT
     Dosage: 20 MG, DAILY
     Route: 058
     Dates: start: 20210610
  5. SOMAVERT [Suspect]
     Active Substance: PEGVISOMANT
     Dosage: 20 MG, DAILY
     Route: 058
     Dates: start: 20210611
  6. SOMAVERT [Suspect]
     Active Substance: PEGVISOMANT
     Dosage: 20 MG, DAILY
     Route: 058
     Dates: start: 20230817
  7. SOMAVERT [Suspect]
     Active Substance: PEGVISOMANT
     Dosage: 20 MG, DAILY
     Route: 058
  8. ADVAIR HFA [Concomitant]
     Active Substance: FLUTICASONE PROPIONATE\SALMETEROL XINAFOATE
  9. CHANTIX [Concomitant]
     Active Substance: VARENICLINE TARTRATE
  10. LANTUS [Concomitant]
     Active Substance: INSULIN GLARGINE
  11. MOTRIN [Concomitant]
     Active Substance: IBUPROFEN
  12. LANREOTIDE [Concomitant]
     Active Substance: LANREOTIDE
  13. TRULICITY [Concomitant]
     Active Substance: DULAGLUTIDE
  14. VENTOLIN HFA [Concomitant]
     Active Substance: ALBUTEROL SULFATE
  15. DIAZEPAM [Concomitant]
     Active Substance: DIAZEPAM
  16. DICLOFENAC [Concomitant]
     Active Substance: DICLOFENAC
  17. ESCITALOPRAM [Concomitant]
     Active Substance: ESCITALOPRAM OXALATE
  18. GABAPENTIN [Concomitant]
     Active Substance: GABAPENTIN
  19. INSULIN ASPART [Concomitant]
     Active Substance: INSULIN ASPART
  20. LISINOPRIL [Concomitant]
     Active Substance: LISINOPRIL
  21. METFORMIN [Concomitant]
     Active Substance: METFORMIN HYDROCHLORIDE

REACTIONS (4)
  - Blister [Unknown]
  - Blood glucose increased [Not Recovered/Not Resolved]
  - Product dose omission issue [Unknown]
  - Product dose omission in error [Unknown]

NARRATIVE: CASE EVENT DATE: 20161116
